FAERS Safety Report 16817953 (Version 1)
Quarter: 2019Q3

REPORT INFORMATION
  Report Type: Spontaneous
  Country: PL (occurrence: PL)
  Receive Date: 20190917
  Receipt Date: 20190917
  Transmission Date: 20191005
  Serious: Yes (Other)
  Sender: FDA-Public Use
  Company Number: PL-SILVERGATE PHARMACEUTICALS, INC.-2019SIL00047

PATIENT
  Sex: Female

DRUGS (2)
  1. METHOTREXATE. [Suspect]
     Active Substance: METHOTREXATE
     Indication: ECTOPIC PREGNANCY
     Dosage: 50 MG, ONCE (25 MG INFUSED BILATERALLY INTO THE UTERINE ARTERIES)
     Route: 013
  2. METHOTREXATE. [Suspect]
     Active Substance: METHOTREXATE
     Indication: THERAPEUTIC EMBOLISATION

REACTIONS (1)
  - Asherman^s syndrome [Recovering/Resolving]
